FAERS Safety Report 6068036-5 (Version None)
Quarter: 2009Q1

REPORT INFORMATION
  Report Type: 
  Country: None (occurrence: None)
  Receive Date: 20090206
  Receipt Date: 20090204
  Transmission Date: 20090719
  Serious: Yes (Death)
  Sender: FDA-Public Use
  Company Number: GB-BRISTOL-MYERS SQUIBB COMPANY-14493423

PATIENT
  Age: 33 Year
  Sex: Female
  Weight: 138 kg

DRUGS (3)
  1. ABILIFY [Suspect]
     Indication: SCHIZOAFFECTIVE DISORDER
     Route: 048
     Dates: start: 20080901
  2. RISPERDAL CONSTA [Concomitant]
  3. STELAZINE [Concomitant]

REACTIONS (1)
  - SUDDEN DEATH [None]
